FAERS Safety Report 5233029-4 (Version None)
Quarter: 2007Q1

REPORT INFORMATION
  Report Type: 
  Country: None (occurrence: None)
  Receive Date: 20070207
  Receipt Date: 20070126
  Transmission Date: 20070707
  Serious: Yes (Hospitalization)
  Sender: FDA-Public Use
  Company Number: US-PFIZER INC-2006135606

PATIENT
  Age: 76 Year
  Sex: Male
  Weight: 69.2 kg

DRUGS (4)
  1. SUTENT [Suspect]
     Indication: TRANSITIONAL CELL CARCINOMA
     Route: 048
  2. CELECOXIB [Concomitant]
     Route: 048
  3. AMBIEN [Concomitant]
     Route: 048
  4. OMEPRAZOLE [Concomitant]
     Route: 048

REACTIONS (1)
  - PNEUMOTHORAX [None]
